FAERS Safety Report 13749531 (Version 1)
Quarter: 2017Q3

REPORT INFORMATION
  Report Type: Spontaneous
  Country: US (occurrence: US)
  Receive Date: 20170713
  Receipt Date: 20170713
  Transmission Date: 20171127
  Serious: Yes (Other)
  Sender: FDA-Public Use
  Company Number: None

PATIENT
  Age: 51 Year
  Sex: Female

DRUGS (2)
  1. PRIALT [Concomitant]
     Active Substance: ZICONOTIDE ACETATE
  2. ENBREL [Suspect]
     Active Substance: ETANERCEPT
     Indication: ARTHRITIS
     Route: 058
     Dates: start: 20170517

REACTIONS (2)
  - Schizophrenia [None]
  - Hallucination, auditory [None]

NARRATIVE: CASE EVENT DATE: 20170712
